FAERS Safety Report 8827779 (Version 1)
Quarter: 2012Q4

REPORT INFORMATION
  Report Type: 
  Country: US (occurrence: US)
  Receive Date: 20121008
  Receipt Date: 20121008
  Transmission Date: 20130627
  Serious: No
  Sender: FDA-Public Use
  Company Number: US-PFIZER INC-2012246797

PATIENT
  Age: 52 Year

DRUGS (3)
  1. CELEBREX [Suspect]
     Dosage: 200 mg, 1x/day
  2. CHANTIX [Suspect]
     Dosage: UNK,Starter pack as directed
  3. CHANTIX [Suspect]
     Dosage: 1 mg, 2x/day
     Route: 048

REACTIONS (1)
  - Osteoarthritis [Unknown]
